FAERS Safety Report 5972216-4 (Version None)
Quarter: 2008Q4

REPORT INFORMATION
  Report Type: 
  Country: None (occurrence: None)
  Receive Date: 20081201
  Receipt Date: 20071102
  Transmission Date: 20090506
  Serious: No
  Sender: FDA-Public Use
  Company Number: US-TEVA-163877USA

PATIENT
  Sex: Male
  Weight: 94.432 kg

DRUGS (5)
  1. SALBUTAMOL SULFATE INHALATION, 0.09 MG [Suspect]
     Indication: ASTHMA
     Dosage: 2 PUFFS EVERY 4 HOURS AS NEEDED.
     Route: 048
     Dates: start: 20061201
  2. SALBUTAMOL SULFATE INHALATION, 0.09 MG [Suspect]
     Indication: RESPIRATORY TRACT INFECTION
  3. FEXOFENADINE [Concomitant]
  4. FLUTICASONE PROPIONATE [Concomitant]
  5. IBUPROFEN TABLETS [Concomitant]

REACTIONS (1)
  - DRUG INEFFECTIVE [None]
